FAERS Safety Report 4515125-X (Version None)
Quarter: 2004Q4

REPORT INFORMATION
  Report Type: 
  Country: None (occurrence: None)
  Receive Date: 20041129
  Receipt Date: 20041129
  Transmission Date: 20050328
  Serious: Yes (Hospitalization, Disabling, Other)
  Sender: FDA-Public Use
  Company Number: None

PATIENT
  Age: 54 Year
  Sex: Male
  Weight: 104.3273 kg

DRUGS (3)
  1. CORICIDIN D SRT [Suspect]
     Indication: NASOPHARYNGITIS
     Dosage: ORAL
     Route: 048
  2. CARDIZEM [Concomitant]
  3. ANTICOAGULANTS [Concomitant]

REACTIONS (10)
  - ANXIETY [None]
  - BONE NEOPLASM MALIGNANT [None]
  - CEREBROVASCULAR ACCIDENT [None]
  - EMOTIONAL DISTRESS [None]
  - HEMIPARESIS [None]
  - MEMORY IMPAIRMENT [None]
  - PAIN [None]
  - POLYTRAUMATISM [None]
  - PROSTATE CANCER [None]
  - SPEECH DISORDER [None]
